FAERS Safety Report 25023423 (Version 1)
Quarter: 2025Q1

REPORT INFORMATION
  Report Type: Spontaneous
  Country: US (occurrence: None)
  Receive Date: 20250227
  Receipt Date: 20250227
  Transmission Date: 20250408
  Serious: Yes (Life-Threatening, Hospitalization, Disabling, Other)
  Sender: FDA-CTU
  Company Number: None

PATIENT
  Age: 34 Year
  Sex: Male
  Weight: 83.25 kg

DRUGS (2)
  1. HERBALS\MITRAGYNINE [Suspect]
     Active Substance: HERBALS\MITRAGYNINE
     Indication: Drug dependence
     Dates: start: 20170201, end: 20230611
  2. HERBALS\MITRAGYNINE [Suspect]
     Active Substance: HERBALS\MITRAGYNINE
     Indication: Depression

REACTIONS (8)
  - Seizure [None]
  - Tremor [None]
  - Incorrect dose administered [None]
  - Fall [None]
  - Euphoric mood [None]
  - Hypothyroidism [None]
  - Blood thyroid stimulating hormone increased [None]
  - Thyroxine decreased [None]

NARRATIVE: CASE EVENT DATE: 20221115
